FAERS Safety Report 7607537-2 (Version None)
Quarter: 2011Q3

REPORT INFORMATION
  Report Type: 
  Country: None (occurrence: None)
  Receive Date: 20110713
  Receipt Date: 20110707
  Transmission Date: 20111222
  Serious: Yes (Disabling, Other)
  Sender: FDA-Public Use
  Company Number: US-BAYER-2011-044766

PATIENT
  Age: 75 Year
  Sex: Female
  Weight: 22.676 kg

DRUGS (6)
  1. LEVOTHYROXINE SODIUM [Concomitant]
     Dosage: 25 ?G, QD
  2. UNCODEABLE ^UNCLASSIFIABLE^ [Concomitant]
     Indication: HYPERTENSION
  3. METOPROLOL SUCCINATE [Concomitant]
     Dosage: 50 ?G, TID
  4. UNCODEABLE ^UNCLASSIFIABLE^ [Concomitant]
  5. AVELOX [Suspect]
     Indication: BRONCHITIS
     Dosage: 400 MG, QD
     Route: 048
     Dates: start: 20110415
  6. LOSARTAN POTASSIUM [Concomitant]

REACTIONS (5)
  - ARTHRALGIA [None]
  - DRUG INEFFECTIVE [None]
  - DIARRHOEA [None]
  - ABDOMINAL PAIN UPPER [None]
  - DIVERTICULUM [None]
